FAERS Safety Report 5485810-4 (Version None)
Quarter: 2007Q4

REPORT INFORMATION
  Report Type: 
  Country: None (occurrence: None)
  Receive Date: 20071015
  Receipt Date: 20071004
  Transmission Date: 20080405
  Serious: Yes (Hospitalization)
  Sender: FDA-Public Use
  Company Number: BR-AMGEN-US247498

PATIENT
  Sex: Female
  Weight: 56 kg

DRUGS (7)
  1. ENBREL [Suspect]
     Indication: RHEUMATOID ARTHRITIS
     Route: 058
     Dates: start: 20070521, end: 20070719
  2. PIROXICAM [Concomitant]
     Route: 048
     Dates: start: 20070101
  3. PREDNISONE [Concomitant]
     Indication: RHEUMATOID ARTHRITIS
     Route: 048
  4. FOLIC ACID [Concomitant]
     Route: 048
     Dates: start: 20070101
  5. ACETAMINOPHEN [Concomitant]
     Route: 048
     Dates: start: 20070101
  6. CHLOROQUINE PHOSPHATE [Concomitant]
     Indication: RHEUMATOID ARTHRITIS
     Route: 048
     Dates: start: 20070101
  7. RANITIDINE HCL [Concomitant]
     Indication: GASTRITIS
     Route: 048
     Dates: start: 20070101

REACTIONS (6)
  - CELLULITIS [None]
  - FEELING COLD [None]
  - HYPERTENSION [None]
  - NAIL INFECTION [None]
  - SWELLING FACE [None]
  - WEIGHT INCREASED [None]
